FAERS Safety Report 24181521 (Version 2)
Quarter: 2024Q3

REPORT INFORMATION
  Report Type: Spontaneous
  Country: US (occurrence: US)
  Receive Date: 20240807
  Receipt Date: 20240807
  Transmission Date: 20241016
  Serious: No
  Sender: ROCHE
  Company Number: US-ROCHE-10000049738

PATIENT
  Age: 56 Year
  Sex: Female

DRUGS (1)
  1. OCREVUS [Suspect]
     Active Substance: OCRELIZUMAB
     Indication: Multiple sclerosis
     Dosage: SHE HAS TAKEN 2 DOSES OF OCREVUS BOTH AT 300MG, AND A THIRD DOSE AT 600MG LAST MONTH.
     Route: 065

REACTIONS (1)
  - Herpes virus infection [Unknown]
